FAERS Safety Report 16975938 (Version 1)
Quarter: 2019Q4

REPORT INFORMATION
  Report Type: Spontaneous
  Country: US (occurrence: US)
  Receive Date: 20191030
  Receipt Date: 20191030
  Transmission Date: 20200122
  Serious: Yes (Other)
  Sender: FDA-Public Use
  Company Number: PHHY2018US115655

PATIENT
  Age: 47 Year
  Sex: Female

DRUGS (2)
  1. TRAMETINIB [Suspect]
     Active Substance: TRAMETINIB
     Indication: OVARIAN CANCER STAGE III
     Dosage: 2 MG, UNK
     Route: 065
     Dates: start: 201801
  2. DABRAFENIB [Suspect]
     Active Substance: DABRAFENIB
     Indication: OVARIAN CANCER STAGE III
     Dosage: 150 MG, UNK
     Route: 065
     Dates: start: 201801

REACTIONS (3)
  - Fatigue [Unknown]
  - Product use in unapproved indication [Unknown]
  - Ovarian cancer recurrent [Unknown]

NARRATIVE: CASE EVENT DATE: 2018
